FAERS Safety Report 4676242-7 (Version None)
Quarter: 2005Q2

REPORT INFORMATION
  Report Type: 
  Country: None (occurrence: None)
  Receive Date: 20050527
  Receipt Date: 20050204
  Transmission Date: 20051028
  Serious: No
  Sender: FDA-Public Use
  Company Number: US-GLAXOSMITHKLINE-A0543953A

PATIENT
  Sex: Female

DRUGS (6)
  1. WELLBUTRIN XL [Suspect]
     Indication: DEPRESSION
     Dosage: 150MG PER DAY
     Route: 048
  2. LEVOXYL [Concomitant]
  3. LASIX [Concomitant]
  4. TRAZODONE [Concomitant]
  5. MORPHINE [Concomitant]
  6. KLONOPIN [Concomitant]

REACTIONS (2)
  - ANXIETY [None]
  - IRRITABILITY [None]
